FAERS Safety Report 14968475 (Version 1)
Quarter: 2018Q2

REPORT INFORMATION
  Report Type: Spontaneous
  Country: ES (occurrence: ES)
  Receive Date: 20180604
  Receipt Date: 20180604
  Transmission Date: 20180711
  Serious: Yes (Other)
  Sender: FDA-Public Use
  Company Number: ES-ACCORD-067666

PATIENT
  Age: 53 Year
  Sex: Male

DRUGS (2)
  1. BICALUTAMIDE. [Suspect]
     Active Substance: BICALUTAMIDE
     Indication: ANTIANDROGEN THERAPY
     Dates: end: 2015
  2. LEUPRORELIN [Concomitant]
     Active Substance: LEUPROLIDE ACETATE
     Indication: ANTIANDROGEN THERAPY

REACTIONS (2)
  - Withdrawal syndrome [Recovering/Resolving]
  - Free prostate-specific antigen decreased [Recovering/Resolving]

NARRATIVE: CASE EVENT DATE: 2015
